FAERS Safety Report 21205410 (Version 1)
Quarter: 2022Q3

REPORT INFORMATION
  Report Type: Spontaneous
  Country: US (occurrence: US)
  Receive Date: 20220812
  Receipt Date: 20220812
  Transmission Date: 20221026
  Serious: Yes (Other)
  Sender: FDA-Public Use
  Company Number: US-CELLTRION INC.-2022US012791

PATIENT

DRUGS (1)
  1. TRUXIMA [Suspect]
     Active Substance: RITUXIMAB-ABBS
     Indication: Myasthenia gravis
     Dosage: 1000 MG D1 AND 15
     Dates: start: 20220719

REACTIONS (2)
  - Myasthenia gravis [Unknown]
  - Off label use [Unknown]

NARRATIVE: CASE EVENT DATE: 20220719
